FAERS Safety Report 11686116 (Version 1)
Quarter: 2015Q4

REPORT INFORMATION
  Report Type: Spontaneous
  Country: US (occurrence: US)
  Receive Date: 20151030
  Receipt Date: 20151030
  Transmission Date: 20160304
  Serious: Yes (Other)
  Sender: FDA-Public Use
  Company Number: US-009507513-1510USA013092

PATIENT
  Age: 78 Year
  Sex: Female

DRUGS (21)
  1. TRAMADOL HYDROCHLORIDE. [Suspect]
     Active Substance: TRAMADOL HYDROCHLORIDE
     Route: 048
  2. AMLODIPINE BESYLATE (+) BENAZEPRIL HYDROCHLORIDE [Suspect]
     Active Substance: AMLODIPINE BESYLATE\BENAZEPRIL HYDROCHLORIDE
     Dosage: 5 MG, UNK
     Route: 048
  3. ASPIRIN. [Concomitant]
     Active Substance: ASPIRIN
  4. POLYETHYLENE GLYCOL 3350. [Suspect]
     Active Substance: POLYETHYLENE GLYCOL 3350
     Indication: PRODUCT USED FOR UNKNOWN INDICATION
     Route: 048
  5. AVAPRO [Suspect]
     Active Substance: IRBESARTAN
  6. LESCOL XL [Suspect]
     Active Substance: FLUVASTATIN SODIUM
     Dosage: 80 MG, UNK
     Route: 048
  7. FOLIC ACID. [Concomitant]
     Active Substance: FOLIC ACID
  8. LYRICA [Concomitant]
     Active Substance: PREGABALIN
  9. ASCORBIC ACID. [Concomitant]
     Active Substance: ASCORBIC ACID
  10. FOSAMAX [Suspect]
     Active Substance: ALENDRONATE SODIUM
     Route: 048
  11. IRON (UNSPECIFIED) [Concomitant]
     Active Substance: IRON
  12. METAMUCIL [Concomitant]
     Active Substance: PLANTAGO SEED
  13. ZETIA [Suspect]
     Active Substance: EZETIMIBE
     Dosage: 10 MG, UNKNOWN
     Route: 048
  14. PLAVIX [Suspect]
     Active Substance: CLOPIDOGREL BISULFATE
     Route: 048
  15. ALLOPURINOL. [Concomitant]
     Active Substance: ALLOPURINOL
  16. SYNTHROID [Concomitant]
     Active Substance: LEVOTHYROXINE SODIUM
  17. PRILOSEC [Concomitant]
     Active Substance: OMEPRAZOLE MAGNESIUM
  18. ZYDONE [Concomitant]
     Active Substance: ACETAMINOPHEN\HYDROCODONE BITARTRATE
  19. VITAMIN B COMPLEX [Concomitant]
     Active Substance: CYANOCOBALAMIN\DEXPANTHENOL\NIACINAMIDE\PYRIDOXINE HYDROCHLORIDE\RIBOFLAVIN 5^-PHOSPHATE SODIUM\THIAMINE HYDROCHLORIDE\VITAMIN B COMPLEX
  20. ACETAMINOPHEN (+) HYDROCODONE BITARTRATE [Concomitant]
     Active Substance: ACETAMINOPHEN\HYDROCODONE
  21. FLONASE [Concomitant]
     Active Substance: FLUTICASONE PROPIONATE

REACTIONS (11)
  - Nausea [Unknown]
  - Dizziness [Unknown]
  - Asthenia [Unknown]
  - Vomiting [Unknown]
  - Dehydration [Unknown]
  - Swollen tongue [Unknown]
  - Headache [Unknown]
  - Fatigue [Unknown]
  - Hiatus hernia [Unknown]
  - Retching [Unknown]
  - Diarrhoea [Unknown]
